FAERS Safety Report 14534705 (Version 1)
Quarter: 2018Q1

REPORT INFORMATION
  Report Type: Spontaneous
  Country: US (occurrence: US)
  Receive Date: 20180215
  Receipt Date: 20180215
  Transmission Date: 20180509
  Serious: Yes (Other)
  Sender: FDA-Public Use
  Company Number: US-ELI_LILLY_AND_COMPANY-US201802002805

PATIENT
  Sex: Female

DRUGS (6)
  1. HUMULIN R [Suspect]
     Active Substance: INSULIN HUMAN
     Dosage: 150 U, DAILY
     Route: 058
     Dates: start: 2014
  2. HUMULIN R [Suspect]
     Active Substance: INSULIN HUMAN
     Dosage: 170 U, EACH EVENING
     Route: 058
     Dates: start: 20180206
  3. HUMULIN R [Suspect]
     Active Substance: INSULIN HUMAN
     Dosage: 170 U, EACH EVENING
     Route: 058
     Dates: start: 2014
  4. HUMULIN R [Suspect]
     Active Substance: INSULIN HUMAN
     Dosage: 150 U, DAILY
     Route: 058
     Dates: start: 20180206
  5. HUMULIN R [Suspect]
     Active Substance: INSULIN HUMAN
     Indication: TYPE 2 DIABETES MELLITUS
     Dosage: 170 U, EACH MORNING
     Route: 058
     Dates: start: 2014
  6. HUMULIN R [Suspect]
     Active Substance: INSULIN HUMAN
     Dosage: 170 U, EACH MORNING
     Route: 058
     Dates: start: 20180206

REACTIONS (16)
  - Weight increased [Unknown]
  - Pain in extremity [Unknown]
  - Pneumonia [Unknown]
  - Malaise [Unknown]
  - Blood glucose increased [Unknown]
  - Nervousness [Unknown]
  - Blood glucose abnormal [Unknown]
  - Blood glucose increased [Unknown]
  - Limb injury [Unknown]
  - Skin discolouration [Unknown]
  - Blood glucose increased [Recovered/Resolved]
  - Drug ineffective [Unknown]
  - Glycosylated haemoglobin increased [Recovering/Resolving]
  - Wrong technique in product usage process [Unknown]
  - Foot fracture [Unknown]
  - Injury [Unknown]

NARRATIVE: CASE EVENT DATE: 2017
